FAERS Safety Report 6057391-8 (Version None)
Quarter: 2009Q1

REPORT INFORMATION
  Report Type: 
  Country: None (occurrence: None)
  Receive Date: 20090129
  Receipt Date: 20090120
  Transmission Date: 20090719
  Serious: Yes (Other)
  Sender: FDA-Public Use
  Company Number: DE-JNJFOC-20090104235

PATIENT
  Age: 49 Year
  Sex: Female

DRUGS (18)
  1. DIPIPERON [Suspect]
     Route: 048
  2. DIPIPERON [Suspect]
     Indication: DRUG USE FOR UNKNOWN INDICATION
     Route: 048
  3. RISPERDAL [Suspect]
     Dosage: 4 - 2 MG
     Route: 048
  4. RISPERDAL [Suspect]
     Route: 048
  5. RISPERDAL [Suspect]
     Indication: DRUG USE FOR UNKNOWN INDICATION
     Route: 048
  6. RISPERDAL CONSTA [Suspect]
     Route: 030
  7. RISPERDAL CONSTA [Suspect]
     Indication: DRUG USE FOR UNKNOWN INDICATION
     Route: 030
  8. TRILEPTAL [Suspect]
     Route: 048
  9. TRILEPTAL [Suspect]
     Route: 048
  10. TRILEPTAL [Suspect]
     Route: 048
  11. TRILEPTAL [Suspect]
     Route: 048
  12. TRILEPTAL [Suspect]
     Route: 048
  13. TRILEPTAL [Suspect]
     Indication: DRUG USE FOR UNKNOWN INDICATION
     Route: 048
  14. LAMICTAL [Concomitant]
     Route: 048
  15. LAMICTAL [Concomitant]
     Route: 048
  16. LAMICTAL [Concomitant]
     Route: 048
  17. LAMICTAL [Concomitant]
     Route: 048
  18. LAMICTAL [Concomitant]
     Dosage: 200-250 MG
     Route: 048

REACTIONS (1)
  - HYPONATRAEMIA [None]
